FAERS Safety Report 8381617-9 (Version None)
Quarter: 2012Q2

REPORT INFORMATION
  Report Type: 
  Country: None (occurrence: None)
  Receive Date: 20120524
  Receipt Date: 20120510
  Transmission Date: 20120825
  Serious: No
  Sender: FDA-Public Use
  Company Number: US-ASTRAZENECA-2012SE30162

PATIENT
  Age: 31 Year
  Sex: Female
  Weight: 61.2 kg

DRUGS (2)
  1. LOESTRIN 1.5/30 [Concomitant]
     Indication: CONTRACEPTION
  2. ZOMIG [Suspect]
     Indication: MIGRAINE
     Route: 048

REACTIONS (2)
  - MIGRAINE [None]
  - INTENTIONAL DRUG MISUSE [None]
